FAERS Safety Report 18825930 (Version 1)
Quarter: 2021Q1

REPORT INFORMATION
  Report Type: Spontaneous
  Country: US (occurrence: US)
  Receive Date: 20210202
  Receipt Date: 20210202
  Transmission Date: 20210419
  Serious: No
  Sender: FDA-Public Use
  Company Number: US-SA-2021SA030066

PATIENT
  Age: 68 Year
  Sex: Male

DRUGS (1)
  1. LANTUS SOLOSTAR [Suspect]
     Active Substance: INSULIN GLARGINE
     Dosage: 34IU AM, 52 IU PM34 UNITS IN THE MORNING, AND 52 UNITS IN THE EVENING, Q12H
     Dates: start: 2016

REACTIONS (1)
  - Inappropriate schedule of product administration [Unknown]
